FAERS Safety Report 6844768-3 (Version None)
Quarter: 2010Q3

REPORT INFORMATION
  Report Type: 
  Country: None (occurrence: None)
  Receive Date: 20100715
  Receipt Date: 20100705
  Transmission Date: 20110219
  Serious: Yes (Hospitalization)
  Sender: FDA-Public Use
  Company Number: GXKR2010JP06356

PATIENT
  Age: 84 Year
  Sex: Female
  Weight: 65 kg

DRUGS (8)
  1. AMLODIPINE [Suspect]
     Indication: HYPERLIPIDAEMIA
     Dosage: UNK
     Route: 065
     Dates: start: 20080701
  2. FUROSEMIDE (NGX) [Suspect]
     Indication: HYPERLIPIDAEMIA
     Dosage: UNK
     Dates: start: 20080701
  3. CANDESARTAN CILEXETIL [Suspect]
     Indication: HYPERLIPIDAEMIA
     Dosage: UNK
     Route: 065
     Dates: start: 20080701
  4. PRAVASTATIN (NGX) [Suspect]
     Indication: HYPERLIPIDAEMIA
     Dosage: UNK
     Dates: start: 20080701
  5. HEPARIN [Suspect]
     Indication: DISSEMINATED INTRAVASCULAR COAGULATION
     Dosage: FLUSHES
     Route: 065
  6. HEPARIN [Suspect]
     Indication: INTRAVENOUS CATHETER MANAGEMENT
     Dosage: 8000 IU/DAY, CONT
  7. ROXATIDINE ACETATE HCL [Suspect]
     Indication: HYPERLIPIDAEMIA
     Dosage: UNK
     Dates: start: 20080701
  8. GABEXATE [Concomitant]
     Indication: DISSEMINATED INTRAVASCULAR COAGULATION
     Route: 065

REACTIONS (9)
  - DISSEMINATED INTRAVASCULAR COAGULATION [None]
  - DYSPNOEA [None]
  - ENDOTRACHEAL INTUBATION [None]
  - FATIGUE [None]
  - HAEMORRHAGIC DIATHESIS [None]
  - HEPARIN-INDUCED THROMBOCYTOPENIA [None]
  - INTERSTITIAL LUNG DISEASE [None]
  - MECHANICAL VENTILATION [None]
  - RALES [None]
